FAERS Safety Report 11438757 (Version 1)
Quarter: 2015Q3

REPORT INFORMATION
  Report Type: Spontaneous
  Country: US (occurrence: US)
  Receive Date: 20150901
  Receipt Date: 20150901
  Transmission Date: 20151125
  Serious: No
  Sender: FDA-Public Use
  Company Number: US-ROCHE-1138133

PATIENT
  Sex: Male

DRUGS (3)
  1. RIBAVIRIN. [Suspect]
     Active Substance: RIBAVIRIN
     Indication: CHRONIC HEPATITIS C
     Dosage: IN DIVIDED DOSES
     Route: 048
     Dates: start: 20120710
  2. INCIVEK [Suspect]
     Active Substance: TELAPREVIR
     Indication: CHRONIC HEPATITIS C
     Route: 065
     Dates: start: 20120710, end: 20121007
  3. PEGASYS [Suspect]
     Active Substance: PEGINTERFERON ALFA-2A
     Indication: CHRONIC HEPATITIS C
     Dosage: 1ST SHIPMENT PROCLICK AUTOINJECTOR/ 2ND SHIPMENT PRE-FILLED SYRINGE
     Route: 058
     Dates: start: 20120710

REACTIONS (4)
  - Lymphadenopathy [Unknown]
  - Anorectal disorder [Recovering/Resolving]
  - Rash [Recovering/Resolving]
  - Fatigue [Unknown]
